FAERS Safety Report 9639778 (Version 1)
Quarter: 2013Q4

REPORT INFORMATION
  Report Type: Spontaneous
  Country: US (occurrence: None)
  Receive Date: 20131021
  Receipt Date: 20131021
  Transmission Date: 20140711
  Serious: Yes (Hospitalization, Disabling, Other)
  Sender: FDA-Public Use
  Company Number: None

PATIENT
  Age: 89 Year
  Sex: Female
  Weight: 68.04 kg

DRUGS (1)
  1. AVASTIN [Suspect]
     Indication: EYE HAEMORRHAGE
     Dates: start: 20121010, end: 20130118

REACTIONS (3)
  - Blindness [None]
  - Headache [None]
  - Eye infection [None]
